FAERS Safety Report 6423212-4 (Version None)
Quarter: 2009Q4

REPORT INFORMATION
  Report Type: 
  Country: None (occurrence: None)
  Receive Date: 20091102
  Receipt Date: 20091002
  Transmission Date: 20100525
  Serious: No
  Sender: FDA-Public Use
  Company Number: US-BAYER-200935264NA

PATIENT
  Age: 30 Year
  Sex: Female

DRUGS (2)
  1. MIRENA [Suspect]
     Indication: CONTRACEPTION
     Dosage: CONTINUOUS
     Route: 015
     Dates: start: 20090430, end: 20090926
  2. DEPO-PROVERA [Concomitant]

REACTIONS (4)
  - ABDOMINAL PAIN [None]
  - MEDICAL DEVICE COMPLICATION [None]
  - PAIN [None]
  - VAGINAL HAEMORRHAGE [None]
